FAERS Safety Report 8996676 (Version 1)
Quarter: 2012Q4

REPORT INFORMATION
  Report Type: Spontaneous
  Country: DE (occurrence: None)
  Receive Date: 20121220
  Receipt Date: 20121220
  Transmission Date: 20130627
  Serious: Yes (Other)
  Sender: FDA-Public Use
  Company Number: 2012-22167

PATIENT
  Sex: Female

DRUGS (2)
  1. TRAMADOL HYDROCHLORIDE (UNKNOWN) [Suspect]
     Indication: LOW BACK PAIN
     Route: 048
  2. TRAMADOL HYDROCHLORIDE (UNKNOWN) [Suspect]
     Indication: LOW BACK PAIN
     Route: 048

REACTIONS (7)
  - Gestational diabetes [None]
  - Foetal macrosomia [None]
  - Caesarean section [None]
  - Drug withdrawal syndrome neonatal [None]
  - Neonatal disorder [None]
  - Tremor neonatal [None]
  - Maternal drugs affecting foetus [None]
